FAERS Safety Report 24848904 (Version 2)
Quarter: 2025Q1

REPORT INFORMATION
  Report Type: Spontaneous
  Country: US (occurrence: US)
  Receive Date: 20250116
  Receipt Date: 20250212
  Transmission Date: 20250408
  Serious: No
  Sender: BRISTOL-MYERS SQUIBB COMPANY
  Company Number: US-BRISTOL-MYERS SQUIBB COMPANY-2025-006282

PATIENT
  Age: 26 Year
  Sex: Female

DRUGS (5)
  1. ORENCIA [Suspect]
     Active Substance: ABATACEPT
     Indication: Immunodeficiency
     Route: 058
     Dates: start: 202411
  2. ORENCIA [Suspect]
     Active Substance: ABATACEPT
     Indication: Immune thrombocytopenia
  3. ORENCIA [Suspect]
     Active Substance: ABATACEPT
     Indication: Autoimmune haemolytic anaemia
  4. ORENCIA [Suspect]
     Active Substance: ABATACEPT
     Indication: Autoimmune lymphoproliferative syndrome
  5. PRIVIGEN [Suspect]
     Active Substance: HUMAN IMMUNOGLOBULIN G
     Indication: Haploinsufficiency of A20
     Dates: start: 2013

REACTIONS (2)
  - Headache [Unknown]
  - Off label use [Unknown]
